FAERS Safety Report 6272409-5 (Version None)
Quarter: 2009Q3

REPORT INFORMATION
  Report Type: 
  Country: None (occurrence: None)
  Receive Date: 20090717
  Receipt Date: 20090713
  Transmission Date: 20100115
  Serious: Yes (Hospitalization)
  Sender: FDA-Public Use
  Company Number: US-MERCK-0905USA03223

PATIENT
  Age: 71 Year
  Sex: Female

DRUGS (10)
  1. FOSAMAX PLUS D [Suspect]
     Indication: OSTEOPOROSIS
     Route: 048
     Dates: end: 20090508
  2. SINGULAIR [Concomitant]
     Route: 048
  3. XYZAL [Concomitant]
     Route: 065
  4. ZOLOFT [Concomitant]
     Route: 065
  5. NEXIUM [Concomitant]
     Route: 065
  6. VAGIFEM [Concomitant]
     Route: 065
  7. ASPIRIN [Concomitant]
     Route: 065
  8. CITRACAL [Concomitant]
     Route: 065
  9. CENTRUM SILVER [Concomitant]
     Route: 065
  10. ALIGN [Concomitant]
     Route: 065

REACTIONS (2)
  - CHEST PAIN [None]
  - MUSCULOSKELETAL PAIN [None]
